APPROVED DRUG PRODUCT: DIPYRIDAMOLE
Active Ingredient: DIPYRIDAMOLE
Strength: 75MG
Dosage Form/Route: TABLET;ORAL
Application: A040782 | Product #003 | TE Code: AB
Applicant: IMPAX LABORATORIES INC
Approved: Jul 18, 2007 | RLD: No | RS: Yes | Type: RX